FAERS Safety Report 14097698 (Version 2)
Quarter: 2017Q4

REPORT INFORMATION
  Report Type: Spontaneous
  Country: CZ (occurrence: CZ)
  Receive Date: 20171017
  Receipt Date: 20171030
  Transmission Date: 20180321
  Serious: Yes (Death, Hospitalization, Other)
  Sender: FDA-Public Use
  Company Number: CZ-CIPLA LTD.-2017CZ18270

PATIENT

DRUGS (5)
  1. ATORVASTATIN [Suspect]
     Active Substance: ATORVASTATIN
     Dosage: EXPECTED DOSE: 0.8 G OF 80 TABLETS
     Route: 048
  2. EBRANTIL RETARD [Suspect]
     Active Substance: URAPIDIL
     Dosage: EXPECTED DOSE: 7.5 G OF 250 CAPSULES
     Route: 048
  3. ARTRODAR [Suspect]
     Active Substance: DIACEREIN
     Dosage: EXPECTED DOSE: 4 G, 80 CAPSULES
     Route: 048
  4. TARKA [Suspect]
     Active Substance: TRANDOLAPRIL\VERAPAMIL HYDROCHLORIDE
     Dosage: EXPECTED DOSE: 10.1G/0.17G, 42 TABLETS
     Route: 048
  5. MOXOGAMMA [Suspect]
     Active Substance: MOXONIDINE
     Dosage: EXPECTED DOSE: 0.02 G OF 50 TABLETS
     Route: 048

REACTIONS (19)
  - Intentional overdose [Unknown]
  - Toxicity to various agents [Unknown]
  - Rhabdomyolysis [Unknown]
  - Arteriosclerosis coronary artery [None]
  - Drug abuse [Unknown]
  - Hernia [Unknown]
  - Arrhythmia [None]
  - Brain oedema [Unknown]
  - Pulmonary oedema [None]
  - Toxicity to various agents [None]
  - Suicide attempt [Unknown]
  - Brain herniation [None]
  - Cardiomyopathy [Unknown]
  - Renal tubular necrosis [Unknown]
  - Cardiogenic shock [None]
  - Shock [Fatal]
  - Pleural effusion [Unknown]
  - Acute kidney injury [Fatal]
  - Loss of consciousness [Unknown]
